FAERS Safety Report 24304385 (Version 1)
Quarter: 2024Q3

REPORT INFORMATION
  Report Type: Spontaneous
  Country: US (occurrence: None)
  Receive Date: 20240910
  Receipt Date: 20240910
  Transmission Date: 20241017
  Serious: No
  Sender: Public
  Company Number: None

PATIENT
  Age: 53 Year
  Sex: Male

DRUGS (1)
  1. BRIUMVI [Suspect]
     Active Substance: UBLITUXIMAB-XIIY
     Indication: Multiple sclerosis
     Dosage: OTHER FREQUENCY : EVERY 24 WEEKS;?
     Route: 040
     Dates: start: 20240101, end: 20240628

REACTIONS (5)
  - Lower respiratory tract infection [None]
  - Nasopharyngitis [None]
  - Nasopharyngitis [None]
  - Impaired work ability [None]
  - Eye infection [None]
